FAERS Safety Report 14350010 (Version 10)
Quarter: 2020Q3

REPORT INFORMATION
  Report Type: Report from Study
  Country: SE (occurrence: SE)
  Receive Date: 20180104
  Receipt Date: 20200929
  Transmission Date: 20201102
  Serious: Yes (Life-Threatening, Hospitalization, Other)
  Sender: FDA-Public Use
  Company Number: SE-AUROBINDO-AUR-APL-2018-000406

PATIENT
  Age: 55 Year
  Sex: Female

DRUGS (8)
  1. ALCOHOL. [Suspect]
     Active Substance: ALCOHOL
     Indication: PRODUCT USED FOR UNKNOWN INDICATION
     Dosage: UNK, LARGE AMOUNTS
     Route: 065
  2. AMLODIPINE [Suspect]
     Active Substance: AMLODIPINE BESYLATE
     Indication: PRODUCT USED FOR UNKNOWN INDICATION
     Dosage: UNK, INGESTED LARGE AMOUNTS
     Route: 048
  3. ADRENALINE [Concomitant]
     Active Substance: EPINEPHRINE
     Indication: PRODUCT USED FOR UNKNOWN INDICATION
     Dosage: 100 MICROGRAM
     Route: 040
  4. ADRENALINE [Concomitant]
     Active Substance: EPINEPHRINE
     Dosage: 1?1.5 UG/KG/MINUTE
     Route: 065
  5. VENLAFAXINE [Suspect]
     Active Substance: VENLAFAXINE HYDROCHLORIDE
     Indication: PRODUCT USED FOR UNKNOWN INDICATION
     Dosage: LARGE QUANTITIES
     Route: 048
  6. ATENOLOL. [Suspect]
     Active Substance: ATENOLOL
     Indication: PRODUCT USED FOR UNKNOWN INDICATION
     Dosage: UNK, INGESTED LARGE AMOUNTS
     Route: 048
  7. ATROPINE. [Concomitant]
     Active Substance: ATROPINE
     Indication: PRODUCT USED FOR UNKNOWN INDICATION
     Dosage: UNK
     Route: 065
  8. PARACETAMOL [Suspect]
     Active Substance: ACETAMINOPHEN
     Indication: PRODUCT USED FOR UNKNOWN INDICATION
     Dosage: UNK, INGESTED LARGE AMOUNTS
     Route: 048

REACTIONS (15)
  - Ejection fraction decreased [Recovered/Resolved]
  - Loss of consciousness [Recovered/Resolved]
  - Toxicity to various agents [Recovered/Resolved]
  - Intentional overdose [Recovered/Resolved]
  - Pneumonia [Recovered/Resolved with Sequelae]
  - Blood lactic acid increased [Unknown]
  - Hypotension [Recovering/Resolving]
  - Left ventricular dysfunction [Recovered/Resolved]
  - Delirium [Recovered/Resolved with Sequelae]
  - Myocardial depression [Recovered/Resolved]
  - Hypokinesia [Recovered/Resolved]
  - Shock [Recovering/Resolving]
  - Heart rate decreased [Recovering/Resolving]
  - Completed suicide [Recovered/Resolved]
  - Suicide attempt [Recovered/Resolved]
